FAERS Safety Report 24595726 (Version 2)
Quarter: 2025Q1

REPORT INFORMATION
  Report Type: Spontaneous
  Country: CA (occurrence: CA)
  Receive Date: 20241109
  Receipt Date: 20250124
  Transmission Date: 20250409
  Serious: Yes (Other)
  Sender: SANOFI AVENTIS
  Company Number: CA-SA-2024SA321693

PATIENT
  Age: 63 Year
  Sex: Female

DRUGS (2)
  1. CLOPIDOGREL BISULFATE [Suspect]
     Active Substance: CLOPIDOGREL BISULFATE
  2. ASPIRIN [Suspect]
     Active Substance: ASPIRIN

REACTIONS (2)
  - Duodenal perforation [Unknown]
  - Haematemesis [Unknown]
